FAERS Safety Report 10190560 (Version 1)
Quarter: 2014Q2

REPORT INFORMATION
  Report Type: Spontaneous
  Country: CH (occurrence: CH)
  Receive Date: 20140523
  Receipt Date: 20140523
  Transmission Date: 20141212
  Serious: Yes (Death, Other)
  Sender: FDA-Public Use
  Company Number: PHHY2014CH059407

PATIENT
  Age: 60 Year
  Sex: Female

DRUGS (5)
  1. CISPLATIN [Suspect]
     Indication: LUNG ADENOCARCINOMA STAGE IV
  2. DOCETAXEL [Suspect]
     Indication: LUNG ADENOCARCINOMA STAGE IV
  3. PEMETREXED [Concomitant]
     Indication: LUNG ADENOCARCINOMA STAGE IV
  4. BEVACIZUMAB [Concomitant]
     Indication: LUNG ADENOCARCINOMA STAGE IV
  5. BISPHOSPHONATES [Concomitant]

REACTIONS (3)
  - Hepatic failure [Fatal]
  - Lung adenocarcinoma metastatic [Unknown]
  - Metastases to liver [Unknown]
